FAERS Safety Report 14751078 (Version 2)
Quarter: 2018Q2

REPORT INFORMATION
  Report Type: Report from Study
  Country: DK (occurrence: DK)
  Receive Date: 20180412
  Receipt Date: 20180418
  Transmission Date: 20180711
  Serious: Yes (Hospitalization)
  Sender: FDA-Public Use
  Company Number: DK-ROCHE-2104544

PATIENT
  Age: 65 Year
  Sex: Male
  Weight: 68 kg

DRUGS (7)
  1. ZOLT [Concomitant]
     Active Substance: LANSOPRAZOLE
     Indication: PROPHYLAXIS
     Route: 048
     Dates: start: 20180122
  2. LAXOBERAL [Concomitant]
     Active Substance: SODIUM PICOSULFATE
     Indication: PROPHYLAXIS
     Route: 048
     Dates: start: 20180130, end: 20180216
  3. ATEZOLIZUMAB. [Suspect]
     Active Substance: ATEZOLIZUMAB
     Indication: NON-SMALL CELL LUNG CANCER
     Dosage: MOST RECENT DOSE PRIOR TO SAE: 19/MAR/2018
     Route: 042
     Dates: start: 20180216
  4. IBUMETIN [Concomitant]
     Active Substance: IBUPROFEN
     Route: 048
     Dates: start: 20180122
  5. PANCILLIN (DENMARK) [Concomitant]
     Route: 048
     Dates: start: 20180319, end: 20180328
  6. LAXOBERAL [Concomitant]
     Active Substance: SODIUM PICOSULFATE
     Indication: TUMOUR PAIN
     Route: 048
     Dates: start: 20180406
  7. PAMOL [Concomitant]
     Active Substance: ACETAMINOPHEN
     Route: 048
     Dates: start: 20170825

REACTIONS (2)
  - Eye pain [Not Recovered/Not Resolved]
  - Tumour pain [Not Recovered/Not Resolved]

NARRATIVE: CASE EVENT DATE: 20180404
